FAERS Safety Report 5618685-0 (Version None)
Quarter: 2008Q1

REPORT INFORMATION
  Report Type: 
  Country: None (occurrence: None)
  Receive Date: 20080207
  Receipt Date: 20080204
  Transmission Date: 20080703
  Serious: Yes (Hospitalization)
  Sender: FDA-Public Use
  Company Number: US-AVENTIS-200810344GDDC

PATIENT
  Age: 54 Year
  Sex: Male
  Weight: 87 kg

DRUGS (13)
  1. DOCETAXEL [Suspect]
     Route: 042
     Dates: start: 20071212, end: 20071212
  2. DOCETAXEL [Suspect]
     Route: 042
     Dates: start: 20080102, end: 20080102
  3. CISPLATIN [Suspect]
     Route: 042
     Dates: start: 20071212, end: 20071212
  4. CISPLATIN [Suspect]
     Route: 042
     Dates: start: 20080102, end: 20080102
  5. FLUOROURACIL [Suspect]
     Dosage: DOSE QUANTITY: 2070
     Route: 042
     Dates: start: 20071212, end: 20071212
  6. FLUOROURACIL [Suspect]
     Dosage: DOSE QUANTITY: 1640
     Route: 042
     Dates: start: 20080102, end: 20080102
  7. AUGMENTIN '125' [Concomitant]
  8. ZANTAC [Concomitant]
  9. ALBUTEROL [Concomitant]
  10. MULTI-VITAMINS [Concomitant]
  11. CORTISONE [Concomitant]
  12. MS CONTIN [Concomitant]
  13. DEXAMETHASONE TAB [Concomitant]

REACTIONS (4)
  - CHILLS [None]
  - DIARRHOEA [None]
  - HYPONATRAEMIA [None]
  - PYREXIA [None]
